FAERS Safety Report 19845864 (Version 1)
Quarter: 2021Q3

REPORT INFORMATION
  Report Type: Spontaneous
  Country: US (occurrence: US)
  Receive Date: 20210915
  Receipt Date: 20210915
  Transmission Date: 20211014
  Serious: No
  Sender: FDA-Public Use
  Company Number: None

PATIENT
  Age: 55 Year
  Sex: Male
  Weight: 200 kg

DRUGS (1)
  1. TICAGRELOR (TICAGRELOR 90MG TAB) [Suspect]
     Active Substance: TICAGRELOR
     Indication: VASCULAR DEVICE USER
     Dates: start: 20201030, end: 20210511

REACTIONS (1)
  - Dyspnoea [None]

NARRATIVE: CASE EVENT DATE: 20210511
